FAERS Safety Report 7277061-8 (Version None)
Quarter: 2011Q1

REPORT INFORMATION
  Report Type: 
  Country: None (occurrence: None)
  Receive Date: 20110207
  Receipt Date: 20110202
  Transmission Date: 20110831
  Serious: Yes (Death, Hospitalization)
  Sender: FDA-Public Use
  Company Number: GB-SP-2010-06467

PATIENT
  Sex: Male

DRUGS (1)
  1. IMMUCYST [Suspect]
     Indication: BLADDER TRANSITIONAL CELL CARCINOMA
     Route: 043
     Dates: start: 20100728, end: 20100908

REACTIONS (13)
  - CARDIAC ARREST [None]
  - HYPOTENSION [None]
  - HYPERSENSITIVITY [None]
  - CHILLS [None]
  - PNEUMONIA [None]
  - NEUTROPENIC SEPSIS [None]
  - CONFUSIONAL STATE [None]
  - DISORIENTATION [None]
  - MULTI-ORGAN FAILURE [None]
  - RESPIRATORY ARREST [None]
  - TACHYPNOEA [None]
  - SEPSIS [None]
  - MALAISE [None]
